FAERS Safety Report 7398068-6 (Version None)
Quarter: 2011Q2

REPORT INFORMATION
  Report Type: 
  Country: None (occurrence: None)
  Receive Date: 20110406
  Receipt Date: 20110327
  Transmission Date: 20111010
  Serious: Yes (Death)
  Sender: FDA-Public Use
  Company Number: IT-BAXTER-2011BH008456

PATIENT

DRUGS (4)
  1. FLUDARABINE [Suspect]
     Indication: B-CELL LYMPHOMA
     Route: 042
  2. FLUCONAZOLE [Concomitant]
     Indication: PROPHYLAXIS
     Route: 065
  3. CYCLOPHOSPHAMIDE [Suspect]
     Indication: B-CELL LYMPHOMA
     Route: 042
  4. SULFAMETHOXAZOLE AND TRIMETHOPRIM [Concomitant]
     Indication: PROPHYLAXIS
     Route: 065

REACTIONS (1)
  - ACUTE MYELOID LEUKAEMIA [None]
